FAERS Safety Report 9517910 (Version 1)
Quarter: 2013Q3

REPORT INFORMATION
  Report Type: Spontaneous
  Country: US (occurrence: None)
  Receive Date: 20130910
  Receipt Date: 20130910
  Transmission Date: 20140515
  Serious: No
  Sender: FDA-Public Use
  Company Number: None

PATIENT
  Age: 62 Year
  Sex: Female
  Weight: 90.72 kg

DRUGS (8)
  1. KISS MY FACE - FACE FACTOR SPF 30 [Suspect]
     Indication: SUNBURN
     Dates: start: 20130907, end: 20130907
  2. KISS MY FACE - FACE FACTOR SPF 30 [Suspect]
     Indication: PROPHYLAXIS
     Dates: start: 20130907, end: 20130907
  3. LISINOPRIL [Concomitant]
  4. METFORMIN [Concomitant]
  5. LOVSTATIN [Concomitant]
  6. ONE-A-DAY VITAMIN [Concomitant]
  7. D3 [Concomitant]
  8. FISH OIL [Concomitant]

REACTIONS (5)
  - Facial pain [None]
  - Erythema [None]
  - Burning sensation [None]
  - Dry skin [None]
  - Dry skin [None]
